FAERS Safety Report 8825939 (Version 1)
Quarter: 2012Q4

REPORT INFORMATION
  Report Type: 
  Country: US (occurrence: US)
  Receive Date: 20121005
  Receipt Date: 20121005
  Transmission Date: 20130627
  Serious: Yes (Hospitalization, Other)
  Sender: FDA-Public Use
  Company Number: US-ELI_LILLY_AND_COMPANY-US200910007342

PATIENT
  Age: 63 Year
  Sex: Female

DRUGS (8)
  1. ZYPREXA [Suspect]
     Indication: SCHIZOPHRENIA
     Dosage: 15 mg, each evening
     Dates: start: 20040105
  2. TEGRETOL [Concomitant]
  3. COGENTIN [Concomitant]
  4. MOBIC [Concomitant]
  5. TOPAMAX [Concomitant]
  6. ABILIFY [Concomitant]
  7. TAMOXIFEN [Concomitant]
  8. LASIX [Concomitant]

REACTIONS (20)
  - Loss of consciousness [Unknown]
  - Anaemia [Unknown]
  - Syncope [Unknown]
  - Tachyarrhythmia [Unknown]
  - Arrhythmia supraventricular [Unknown]
  - Orthostatic hypotension [Unknown]
  - Deep vein thrombosis [Unknown]
  - Convulsion [Unknown]
  - Atrial fibrillation [Unknown]
  - Cerebrovascular accident [Unknown]
  - Myocardial infarction [Unknown]
  - Hepatitis C [Unknown]
  - Type 2 diabetes mellitus [Unknown]
  - Haemoptysis [Unknown]
  - Chest pain [Unknown]
  - Diarrhoea [Unknown]
  - Cellulitis [Unknown]
  - Gastrooesophageal reflux disease [Unknown]
  - Oedema peripheral [Unknown]
  - Blood cholesterol increased [Unknown]
